FAERS Safety Report 25511722 (Version 1)
Quarter: 2025Q3

REPORT INFORMATION
  Report Type: Spontaneous
  Country: US (occurrence: US)
  Receive Date: 20250703
  Receipt Date: 20250703
  Transmission Date: 20251021
  Serious: No
  Sender: RADIUS PHARM
  Company Number: US-RADIUS HEALTH INC.-2024US007241

PATIENT
  Sex: Female

DRUGS (1)
  1. TYMLOS [Suspect]
     Active Substance: ABALOPARATIDE
     Indication: Osteopenia

REACTIONS (4)
  - Fracture [Unknown]
  - Fall [Unknown]
  - Product use in unapproved indication [Not Recovered/Not Resolved]
  - Pain in extremity [Unknown]
